FAERS Safety Report 4768263-0 (Version None)
Quarter: 2005Q3

REPORT INFORMATION
  Report Type: 
  Country: None (occurrence: None)
  Receive Date: 20050913
  Receipt Date: 20050901
  Transmission Date: 20060218
  Serious: Yes (Congenital Anomaly)
  Sender: FDA-Public Use
  Company Number: GXKR2005US01524

PATIENT
  Sex: 0

DRUGS (1)
  1. LOVASTATIN [Suspect]
     Dosage: 20 MG, QD, TRANSPLACENTAL
     Route: 064

REACTIONS (9)
  - CONGENITAL CENTRAL NERVOUS SYSTEM ANOMALY [None]
  - CONGENITAL ORAL MALFORMATION [None]
  - CONGENITAL SPINAL CORD ANOMALY [None]
  - CONTRAINDICATION TO MEDICAL TREATMENT [None]
  - DRUG EXPOSURE DURING PREGNANCY [None]
  - HYDROCEPHALUS [None]
  - MENINGOMYELOCELE [None]
  - MULTIPLE CONGENITAL ABNORMALITIES [None]
  - NEURAL TUBE DEFECT [None]
